FAERS Safety Report 9044645 (Version 1)
Quarter: 2013Q1

REPORT INFORMATION
  Report Type: Report from Study
  Country: DE (occurrence: DE)
  Receive Date: 20130130
  Receipt Date: 20130130
  Transmission Date: 20140127
  Serious: Yes (Death)
  Sender: FDA-Public Use
  Company Number: DE-CELGENEUS-062-50794-12021622

PATIENT
  Age: 64 Year
  Sex: Female
  Weight: 58 kg

DRUGS (4)
  1. VIDAZA [Suspect]
     Indication: ACUTE MYELOID LEUKAEMIA
     Dosage: 165 MILLIGRAM
     Route: 065
     Dates: start: 20111231, end: 20120107
  2. IDARUBICIN [Suspect]
     Indication: ACUTE MYELOID LEUKAEMIA
     Dosage: 19.8 MILLIGRAM
     Route: 065
     Dates: start: 20111231, end: 20120102
  3. ETOPOSID [Suspect]
     Indication: ACUTE MYELOID LEUKAEMIA
     Dosage: 165 MILLIGRAM
     Route: 065
     Dates: start: 20111231, end: 20120102
  4. FILGRASTIM [Concomitant]
     Indication: COLONY STIMULATING FACTOR THERAPY
     Dosage: 30 MIO
     Route: 058
     Dates: start: 20120213

REACTIONS (2)
  - Megacolon [Fatal]
  - Pneumonia fungal [Fatal]
